FAERS Safety Report 9712422 (Version 1)
Quarter: 2013Q4

REPORT INFORMATION
  Report Type: Spontaneous
  Country: US (occurrence: US)
  Receive Date: 20131126
  Receipt Date: 20131126
  Transmission Date: 20140711
  Serious: No
  Sender: FDA-Public Use
  Company Number: US-BRISTOL-MYERS SQUIBB COMPANY-18871715

PATIENT
  Age: 67 Year
  Sex: Female
  Weight: 131.52 kg

DRUGS (2)
  1. BYDUREON [Suspect]
     Indication: TYPE 2 DIABETES MELLITUS
     Dosage: FIRST DOSE
     Dates: start: 20130423
  2. METFORMIN [Concomitant]

REACTIONS (3)
  - Diarrhoea [Unknown]
  - Nausea [Unknown]
  - Constipation [Unknown]
